FAERS Safety Report 13740829 (Version 1)
Quarter: 2017Q3

REPORT INFORMATION
  Report Type: Spontaneous
  Country: US (occurrence: US)
  Receive Date: 20170710
  Receipt Date: 20170710
  Transmission Date: 20171127
  Serious: No
  Sender: FDA-Public Use
  Company Number: None

PATIENT
  Age: 30 Year
  Sex: Female
  Weight: 90 kg

DRUGS (3)
  1. DELTASONE [Suspect]
     Active Substance: PREDNISONE
     Indication: RASH PRURITIC
     Dates: start: 20170708, end: 20170710
  2. ORTHO TRI CYCLEN [Concomitant]
     Active Substance: ETHINYL ESTRADIOL\NORGESTIMATE
  3. DELTASONE [Suspect]
     Active Substance: PREDNISONE
     Indication: ACARODERMATITIS
     Dates: start: 20170708, end: 20170710

REACTIONS (8)
  - Hot flush [None]
  - Pain in extremity [None]
  - Sleep disorder [None]
  - Pain [None]
  - Arthralgia [None]
  - Palpitations [None]
  - Blood pressure increased [None]
  - Discomfort [None]

NARRATIVE: CASE EVENT DATE: 20170708
